FAERS Safety Report 5378682-X (Version None)
Quarter: 2007Q2

REPORT INFORMATION
  Report Type: 
  Country: None (occurrence: None)
  Receive Date: 20070530
  Receipt Date: 20070221
  Transmission Date: 20071010
  Serious: No
  Sender: FDA-Public Use
  Company Number: 2007PV030474

PATIENT
  Age: 54 Year
  Sex: Female
  Weight: 83.9154 kg

DRUGS (14)
  1. BYETTA [Suspect]
     Indication: DIABETES MELLITUS NON-INSULIN-DEPENDENT
     Dosage: 5 MCG;BID;SC
     Route: 058
     Dates: start: 20070220
  2. BYETTA [Suspect]
  3. AVANDIA [Concomitant]
  4. GLUCOPHAGE [Concomitant]
  5. PREVACID [Concomitant]
  6. METFORMIN HCL [Concomitant]
  7. FEMARA [Concomitant]
  8. ZETIA [Concomitant]
  9. PREVACID [Concomitant]
  10. ASPIRIN [Concomitant]
  11. AINTI-INFLAMMATORIES [Concomitant]
  12. RELAFEN [Concomitant]
  13. TYLENOL ARTHRITIS [Concomitant]
  14. MECLIZINE [Concomitant]

REACTIONS (15)
  - CHROMATURIA [None]
  - DECREASED APPETITE [None]
  - DIZZINESS [None]
  - DRUG EFFECT DECREASED [None]
  - FAECES DISCOLOURED [None]
  - GASTROOESOPHAGEAL REFLUX DISEASE [None]
  - HEADACHE [None]
  - INJECTION SITE BRUISING [None]
  - INJECTION SITE ERYTHEMA [None]
  - INJECTION SITE PAIN [None]
  - NAUSEA [None]
  - NECK INJURY [None]
  - VERTIGO [None]
  - VOMITING [None]
  - WEIGHT DECREASED [None]
